FAERS Safety Report 5737363-0 (Version None)
Quarter: 2008Q2

REPORT INFORMATION
  Report Type: 
  Country: None (occurrence: None)
  Receive Date: 20080514
  Receipt Date: 20080212
  Transmission Date: 20081010
  Serious: Yes (Hospitalization)
  Sender: FDA-Public Use
  Company Number: US-BRISTOL-MYERS SQUIBB COMPANY-14017073

PATIENT
  Age: 56 Year
  Sex: Female

DRUGS (16)
  1. IXEMPRA KIT [Suspect]
     Indication: BREAST CANCER METASTATIC
     Dosage: ON DAY 1 OF 21 DAYS
     Route: 042
     Dates: start: 20071214, end: 20071214
  2. LISINOPRIL [Suspect]
     Indication: HYPERTENSION
     Route: 048
     Dates: end: 20080104
  3. XELODA [Suspect]
     Indication: BREAST CANCER METASTATIC
     Dosage: 1000 MG/M2/BID X 14 DAYS OF 21 DAYS.
     Route: 048
     Dates: start: 20071214
  4. KYTRIL [Concomitant]
     Route: 042
  5. BENADRYL [Concomitant]
     Route: 048
  6. ZANTAC [Concomitant]
     Route: 042
  7. DECADRON [Concomitant]
     Route: 042
  8. CELEBREX [Concomitant]
     Indication: PAIN
  9. DARVOCET [Concomitant]
     Indication: PAIN
  10. DURAGESIC-100 [Concomitant]
     Indication: PAIN
  11. NEURONTIN [Concomitant]
     Indication: PAIN
  12. ACYCLOVIR SODIUM [Concomitant]
     Indication: HERPES SIMPLEX
  13. HYDROCHLOROTHIAZIDE [Concomitant]
     Indication: HYPERTENSION
  14. TUMS [Concomitant]
     Indication: GASTROOESOPHAGEAL REFLUX DISEASE
  15. COMPAZINE [Concomitant]
     Indication: NAUSEA
  16. PRILOSEC [Concomitant]
     Indication: GASTROOESOPHAGEAL REFLUX DISEASE

REACTIONS (1)
  - ANGIOEDEMA [None]
